FAERS Safety Report 7833614-7 (Version None)
Quarter: 2011Q4

REPORT INFORMATION
  Report Type: 
  Country: None (occurrence: None)
  Receive Date: 20111024
  Receipt Date: 20111010
  Transmission Date: 20120403
  Serious: Yes (Hospitalization)
  Sender: FDA-Public Use
  Company Number: SE-MYLANLABS-2011S1021506

PATIENT
  Age: 37 Year
  Sex: Female

DRUGS (1)
  1. BROMOCRIPTINE MESYLATE [Suspect]
     Indication: LACTATION INHIBITION THERAPY
     Route: 065

REACTIONS (3)
  - STRESS CARDIOMYOPATHY [None]
  - ACUTE CORONARY SYNDROME [None]
  - ARTERIOSPASM CORONARY [None]
